FAERS Safety Report 16633420 (Version 1)
Quarter: 2019Q3

REPORT INFORMATION
  Report Type: Spontaneous
  Country: PT (occurrence: PT)
  Receive Date: 20190725
  Receipt Date: 20190725
  Transmission Date: 20191004
  Serious: Yes (Other)
  Sender: FDA-Public Use
  Company Number: PHHY2019PT033045

PATIENT
  Age: 67 Year
  Sex: Male

DRUGS (1)
  1. CARBAMAZEPINE. [Suspect]
     Active Substance: CARBAMAZEPINE
     Indication: TRIGEMINAL NEURALGIA
     Dosage: 800 MG, QD
     Route: 065

REACTIONS (4)
  - Hyperammonaemic encephalopathy [Recovered/Resolved]
  - Toxicity to various agents [Unknown]
  - Anaemia [Unknown]
  - Metabolic acidosis [Unknown]
